FAERS Safety Report 14348024 (Version 2)
Quarter: 2018Q1

REPORT INFORMATION
  Report Type: Spontaneous
  Country: JP (occurrence: JP)
  Receive Date: 20180103
  Receipt Date: 20180212
  Transmission Date: 20180509
  Serious: Yes (Hospitalization)
  Sender: FDA-Public Use
  Company Number: JP-VALIDUS PHARMACEUTICALS LLC-JP-2018VAL000013

PATIENT
  Age: 67 Year
  Sex: Female

DRUGS (6)
  1. DOBUTAMINE [Concomitant]
     Active Substance: DOBUTAMINE\DOBUTAMINE HYDROCHLORIDE
     Indication: PRODUCT USED FOR UNKNOWN INDICATION
     Dosage: UNK
  2. MACITENTAN [Suspect]
     Active Substance: MACITENTAN
     Indication: PULMONARY ARTERIAL HYPERTENSION
     Dosage: 10 MG, QD
     Route: 065
  3. EPOPROSTENOL. [Suspect]
     Active Substance: EPOPROSTENOL
     Indication: PULMONARY ARTERIAL HYPERTENSION
     Dosage: UNK
     Route: 042
  4. FUROSEMIDE. [Suspect]
     Active Substance: FUROSEMIDE
     Indication: PLEURAL EFFUSION
     Dosage: 40 MG, QD
     Route: 042
  5. SILDENAFIL CITRATE. [Suspect]
     Active Substance: SILDENAFIL CITRATE
     Indication: PULMONARY ARTERIAL HYPERTENSION
     Dosage: 60 MG, QD
     Route: 065
  6. EPOPROSTENOL. [Suspect]
     Active Substance: EPOPROSTENOL
     Dosage: UNK
     Route: 042

REACTIONS (8)
  - Dehydration [Unknown]
  - Chest X-ray abnormal [Recovered/Resolved]
  - Urine output increased [Unknown]
  - Pulmonary oedema [Recovered/Resolved]
  - Oxygen saturation decreased [Recovered/Resolved]
  - Lung infiltration [Recovered/Resolved]
  - Pleural effusion [Recovered/Resolved]
  - Weight decreased [Unknown]
